FAERS Safety Report 12548577 (Version 2)
Quarter: 2016Q3

REPORT INFORMATION
  Report Type: Spontaneous
  Country: US (occurrence: US)
  Receive Date: 20160712
  Receipt Date: 20160818
  Transmission Date: 20161109
  Serious: Yes (Other)
  Sender: FDA-Public Use
  Company Number: US-SA-2016SA124753

PATIENT
  Age: 65 Year
  Sex: Male
  Weight: 90.71 kg

DRUGS (1)
  1. GOLD BOND WITH ALOE [Suspect]
     Active Substance: HERBALS\MENTHOL\ZINC OXIDE
     Indication: SKIN IRRITATION
     Dosage: POWDER SPRAY
     Route: 061
     Dates: start: 20160701, end: 20160701

REACTIONS (3)
  - Erythema [Recovered/Resolved]
  - Burns second degree [Recovered/Resolved]
  - Burns third degree [Recovered/Resolved]

NARRATIVE: CASE EVENT DATE: 20160701
